FAERS Safety Report 5097929-0 (Version None)
Quarter: 2006Q3

REPORT INFORMATION
  Report Type: 
  Country: None (occurrence: None)
  Receive Date: 20060905
  Receipt Date: 20060905
  Transmission Date: 20061208
  Serious: Yes (Death)
  Sender: FDA-Public Use
  Company Number: None

PATIENT
  Age: 35 Year
  Sex: Male
  Weight: 81.6475 kg

DRUGS (3)
  1. ZOLOFT [Suspect]
     Indication: BIPOLAR DISORDER
     Dates: start: 20040201, end: 20060622
  2. ZOLOFT [Suspect]
     Indication: DEPRESSION
     Dates: start: 20040201, end: 20060622
  3. ZOLOFT [Suspect]
     Indication: SOCIAL PHOBIA
     Dates: start: 20040201, end: 20060622

REACTIONS (4)
  - BANKRUPTCY [None]
  - COMPLETED SUICIDE [None]
  - MANIA [None]
  - PANIC REACTION [None]
